FAERS Safety Report 6391273-7 (Version None)
Quarter: 2009Q4

REPORT INFORMATION
  Report Type: 
  Country: None (occurrence: None)
  Receive Date: 20091007
  Receipt Date: 20091002
  Transmission Date: 20100525
  Serious: Yes (Hospitalization)
  Sender: FDA-Public Use
  Company Number: US-AMGEN-US367314

PATIENT
  Age: 53 Year
  Sex: Female

DRUGS (8)
  1. NPLATE [Suspect]
     Indication: IDIOPATHIC THROMBOCYTOPENIC PURPURA
     Route: 058
     Dates: start: 20090901
  2. ALPRAZOLAM [Concomitant]
     Route: 048
  3. DOCUSATE [Concomitant]
     Route: 048
  4. ADVAIR DISKUS 100/50 [Concomitant]
     Route: 055
  5. FOLIC ACID [Concomitant]
     Route: 048
  6. ARIXTRA [Concomitant]
     Route: 065
  7. PREDNISONE [Concomitant]
     Route: 048
  8. ALBUTEROL SULFATE AUTOHALER [Concomitant]
     Route: 055

REACTIONS (1)
  - DYSPNOEA [None]
